FAERS Safety Report 5830776-8 (Version None)
Quarter: 2008Q3

REPORT INFORMATION
  Report Type: 
  Country: None (occurrence: None)
  Receive Date: 20080801
  Receipt Date: 20071116
  Transmission Date: 20090109
  Serious: No
  Sender: FDA-Public Use
  Company Number: US-BRISTOL-MYERS SQUIBB COMPANY-13985528

PATIENT
  Age: 76 Year
  Sex: Female
  Weight: 61 kg

DRUGS (12)
  1. COUMADIN [Suspect]
     Dosage: 1 DOSAGE FORM = 5MG ON SUNDAY + WEDNESDAY; 2.5MG ON ALL OTHER DAYS OF THE WEEK.
     Route: 048
     Dates: start: 20071001
  2. PAXIL [Concomitant]
  3. SOTALOL HCL [Concomitant]
  4. ASPIRIN [Concomitant]
  5. COZAAR [Concomitant]
  6. MAXIDEX [Concomitant]
  7. GLIPIZIDE [Concomitant]
  8. BENTYL [Concomitant]
  9. NORCO [Concomitant]
  10. KLONOPIN [Concomitant]
  11. FLONASE [Concomitant]
  12. ALBUTEROL [Concomitant]

REACTIONS (3)
  - IRRITABLE BOWEL SYNDROME [None]
  - OEDEMA PERIPHERAL [None]
  - SKIN DISORDER [None]
